FAERS Safety Report 16491753 (Version 1)
Quarter: 2019Q3

REPORT INFORMATION
  Report Type: Spontaneous
  Country: US (occurrence: US)
  Receive Date: 20190627
  Receipt Date: 20190627
  Transmission Date: 20191004
  Serious: Yes (Other)
  Sender: FDA-Public Use
  Company Number: None

PATIENT
  Age: 33 Year
  Sex: Female

DRUGS (2)
  1. BUPRENORPHINE/NALAXONE TABLETS [Suspect]
     Active Substance: BUPRENORPHINE HYDROCHLORIDE\NALOXONE HYDROCHLORIDE
     Indication: DRUG DEPENDENCE
     Route: 048
     Dates: start: 20190605, end: 20190627
  2. BUPRENORPHINE NALOXONE 8-NG TABLETS [Concomitant]
     Active Substance: BUPRENORPHINE\NALOXONE
     Dates: start: 20190605, end: 20190627

REACTIONS (4)
  - Feeling abnormal [None]
  - Anxiety [None]
  - Drug dependence [None]
  - Product formulation issue [None]

NARRATIVE: CASE EVENT DATE: 20190626
